FAERS Safety Report 5862688-8 (Version None)
Quarter: 2008Q3

REPORT INFORMATION
  Report Type: 
  Country: None (occurrence: None)
  Receive Date: 20080828
  Receipt Date: 20080818
  Transmission Date: 20090109
  Serious: Yes (Death, Hospitalization)
  Sender: FDA-Public Use
  Company Number: HQWYE088503FEB05

PATIENT
  Sex: Female
  Weight: 121 kg

DRUGS (9)
  1. TEMSIROLIMUS [Suspect]
     Indication: RENAL CELL CARCINOMA
     Route: 042
     Dates: start: 20041208, end: 20050201
  2. PREVACID [Concomitant]
     Indication: GASTROOESOPHAGEAL REFLUX DISEASE
     Dosage: 30 MG DAILY DOSE
     Route: 048
     Dates: start: 20041124
  3. CEFADROXIL [Concomitant]
     Indication: CELLULITIS
     Dosage: 500 MG DAILY DOSE
     Route: 048
     Dates: start: 20041124
  4. SPIRONOLACTONE [Concomitant]
     Dosage: 50 MG DAILY DOSE; START DATE NOT PROVIDED
     Route: 048
     Dates: start: 20041214, end: 20050201
  5. FAMVIR [Concomitant]
     Dosage: 1000 MG DAILY DOSE; START DATE NOT PROVIDED
     Route: 048
  6. COUMADIN [Concomitant]
     Indication: ANTICOAGULANT THERAPY
     Dosage: 4 MG DAILY DOSE
     Route: 048
     Dates: start: 20050201
  7. K-DUR [Concomitant]
     Dosage: 40 MEQ DAILY DOSE; START DATE NOT PROVIDED
     Route: 048
  8. LASIX [Concomitant]
     Indication: FLUID OVERLOAD
     Dosage: 120 MG DAILY DOSE
     Route: 048
     Dates: start: 20041209
  9. LORAZEPAM [Concomitant]
     Indication: INSOMNIA
     Dosage: 1 MG DAILY DOSE
     Route: 048
     Dates: start: 20041124

REACTIONS (1)
  - HYPERKALAEMIA [None]
